FAERS Safety Report 22029549 (Version 4)
Quarter: 2023Q4

REPORT INFORMATION
  Report Type: Spontaneous
  Country: US (occurrence: US)
  Receive Date: 20230223
  Receipt Date: 20231220
  Transmission Date: 20240109
  Serious: No
  Sender: FDA-Public Use
  Company Number: US-PFIZER INC-202300077991

PATIENT
  Age: 54 Year
  Sex: Male
  Weight: 102.27 kg

DRUGS (1)
  1. BOSULIF [Suspect]
     Active Substance: BOSUTINIB MONOHYDRATE
     Indication: Chronic myeloid leukaemia
     Dosage: 400 MG, 1X/DAY (400MG ORAL.TAKE 1 TABLET (400 MG) DAILY)
     Route: 048
     Dates: start: 202103

REACTIONS (2)
  - Diarrhoea [Not Recovered/Not Resolved]
  - Neoplasm progression [Unknown]

NARRATIVE: CASE EVENT DATE: 20210101
